FAERS Safety Report 25040237 (Version 1)
Quarter: 2025Q1

REPORT INFORMATION
  Report Type: Spontaneous
  Country: CA (occurrence: CA)
  Receive Date: 20250305
  Receipt Date: 20250305
  Transmission Date: 20250408
  Serious: Yes (Hospitalization)
  Sender: ROCHE
  Company Number: CA-002147023-NVSC2025CA032795

PATIENT
  Age: 86 Year
  Sex: Female

DRUGS (16)
  1. OMALIZUMAB [Suspect]
     Active Substance: OMALIZUMAB
     Indication: Chronic spontaneous urticaria
     Dosage: 150 MG (1 EVERY 4 WEEKS)
     Route: 050
  2. OMALIZUMAB [Suspect]
     Active Substance: OMALIZUMAB
     Dosage: 150 MG (1 EVERY 4 WEEKS)
     Route: 050
  3. OMALIZUMAB [Suspect]
     Active Substance: OMALIZUMAB
     Dosage: 150 MG (1 EVERY 4 WEEKS)
     Route: 050
  4. OMALIZUMAB [Suspect]
     Active Substance: OMALIZUMAB
     Route: 050
  5. OMALIZUMAB [Suspect]
     Active Substance: OMALIZUMAB
     Dosage: 300 MG (1 EVERY 4 WEEKS)
     Route: 050
  6. OMALIZUMAB [Suspect]
     Active Substance: OMALIZUMAB
     Dosage: 150 MG (1 EVERY 4 WEEKS)
     Route: 050
  7. OMALIZUMAB [Suspect]
     Active Substance: OMALIZUMAB
     Dosage: 150 MG (1 EVERY 4 WEEKS)
     Route: 050
  8. OMALIZUMAB [Suspect]
     Active Substance: OMALIZUMAB
     Dosage: 300 MG (1 EVERY 4 WEEKS)
     Route: 050
  9. BILASTINE [Concomitant]
     Active Substance: BILASTINE
     Indication: Product used for unknown indication
     Dosage: 3 DOSAGE FORM, QD
     Route: 050
  10. BILASTINE [Concomitant]
     Active Substance: BILASTINE
     Dosage: 3 DOSAGE FORM, QD
     Route: 065
  11. CETIRIZINE [Concomitant]
     Active Substance: CETIRIZINE HYDROCHLORIDE
     Indication: Product used for unknown indication
     Route: 065
  12. DUPIXENT [Concomitant]
     Active Substance: DUPILUMAB
     Indication: Product used for unknown indication
     Route: 065
  13. PREDNISOLONE [Concomitant]
     Active Substance: PREDNISOLONE
     Indication: Product used for unknown indication
     Route: 065
  14. PREDNISOLONE [Concomitant]
     Active Substance: PREDNISOLONE
     Route: 065
  15. TACROLIMUS [Concomitant]
     Active Substance: TACROLIMUS
     Indication: Product used for unknown indication
     Route: 065
  16. TOPICORT [Concomitant]
     Active Substance: DESOXIMETASONE
     Indication: Product used for unknown indication
     Route: 065

REACTIONS (13)
  - Blood pressure systolic increased [Recovered/Resolved]
  - Decreased appetite [Recovered/Resolved]
  - Dermatitis atopic [Recovered/Resolved]
  - Eczema [Recovered/Resolved]
  - Hypotension [Recovered/Resolved]
  - Insomnia [Recovered/Resolved]
  - Middle insomnia [Recovered/Resolved]
  - Product supply issue [Unknown]
  - Skin plaque [Recovered/Resolved]
  - Dizziness [Recovered/Resolved]
  - Nausea [Recovered/Resolved]
  - Urticaria [Recovered/Resolved]
  - Drug ineffective [Unknown]
